FAERS Safety Report 6235516-9 (Version None)
Quarter: 2009Q2

REPORT INFORMATION
  Report Type: 
  Country: None (occurrence: None)
  Receive Date: 20090618
  Receipt Date: 20080801
  Transmission Date: 20091009
  Serious: No
  Sender: FDA-Public Use
  Company Number: US-ASTRAZENECA-2008UW15210

PATIENT
  Age: 79 Year
  Sex: Male

DRUGS (2)
  1. RHINOCORT [Suspect]
     Indication: NASAL POLYPS
     Dosage: 2 SPRAYS DAILY, IN EACH NOSTRIL
     Route: 045
  2. METFORMIN HCL [Concomitant]

REACTIONS (1)
  - BLOOD GLUCOSE INCREASED [None]
